FAERS Safety Report 11647551 (Version 1)
Quarter: 2015Q4

REPORT INFORMATION
  Report Type: Spontaneous
  Country: US (occurrence: None)
  Receive Date: 20151019
  Receipt Date: 20151019
  Transmission Date: 20160304
  Serious: Yes (Hospitalization)
  Sender: FDA-Public Use
  Company Number: None

PATIENT
  Age: 35 Year
  Sex: Female
  Weight: 50.8 kg

DRUGS (1)
  1. TEMOZOLOMIDE. [Suspect]
     Active Substance: TEMOZOLOMIDE
     Dates: end: 20151001

REACTIONS (8)
  - Seizure [None]
  - Confusional state [None]
  - Meningitis bacterial [None]
  - Tremor [None]
  - Rash pruritic [None]
  - Fatigue [None]
  - Malaise [None]
  - Headache [None]

NARRATIVE: CASE EVENT DATE: 20151012
